FAERS Safety Report 14923975 (Version 1)
Quarter: 2018Q2

REPORT INFORMATION
  Report Type: Spontaneous
  Country: JP (occurrence: JP)
  Receive Date: 20180522
  Receipt Date: 20180522
  Transmission Date: 20180711
  Serious: Yes (Other)
  Sender: FDA-Public Use
  Company Number: JP-EMD SERONO-9027857

PATIENT
  Age: 33 Year
  Sex: Female

DRUGS (2)
  1. GONAL-F [Suspect]
     Active Substance: FOLLITROPIN
     Indication: PRODUCT USED FOR UNKNOWN INDICATION
     Route: 058
     Dates: start: 201707, end: 201707
  2. SEROPHENE [Suspect]
     Active Substance: CLOMIPHENE CITRATE
     Indication: PRODUCT USED FOR UNKNOWN INDICATION
     Route: 048
     Dates: start: 201707, end: 201707

REACTIONS (1)
  - Ovarian hyperstimulation syndrome [Unknown]
